FAERS Safety Report 19019357 (Version 3)
Quarter: 2021Q2

REPORT INFORMATION
  Report Type: Spontaneous
  Country: US (occurrence: US)
  Receive Date: 20210317
  Receipt Date: 20210412
  Transmission Date: 20210717
  Serious: No
  Sender: FDA-Public Use
  Company Number: US-VERTEX PHARMACEUTICALS-2021-004062

PATIENT
  Age: 6 Year
  Sex: Male

DRUGS (10)
  1. KALYDECO [Suspect]
     Active Substance: IVACAFTOR
     Dosage: EVERY OTHER DAY
     Route: 048
     Dates: end: 202009
  2. PULMOZYME [Concomitant]
     Active Substance: DORNASE ALFA
  3. FLOVENT [Concomitant]
     Active Substance: FLUTICASONE PROPIONATE
  4. KALYDECO [Suspect]
     Active Substance: IVACAFTOR
     Dosage: 150 MG, BID
     Route: 048
     Dates: start: 201808, end: 2018
  5. KALYDECO [Suspect]
     Active Substance: IVACAFTOR
     Dosage: UNK, QD
     Route: 048
  6. ALBUTEROL [SALBUTAMOL] [Concomitant]
     Active Substance: ALBUTEROL
  7. SODIUM CHLORIDE. [Concomitant]
     Active Substance: SODIUM CHLORIDE
     Dosage: 3%, NEBULIZED SOLUTION
  8. KALYDECO [Suspect]
     Active Substance: IVACAFTOR
     Dosage: 75 MG GRANULES
     Route: 048
     Dates: start: 201812, end: 202008
  9. CREON [Concomitant]
     Active Substance: PANCRELIPASE AMYLASE\PANCRELIPASE LIPASE\PANCRELIPASE PROTEASE
  10. KALYDECO [Suspect]
     Active Substance: IVACAFTOR
     Indication: CYSTIC FIBROSIS
     Dosage: 75 MG, BID
     Route: 048
     Dates: start: 201508

REACTIONS (1)
  - Tic [Recovered/Resolved]

NARRATIVE: CASE EVENT DATE: 201708
